FAERS Safety Report 6943285-X (Version None)
Quarter: 2010Q3

REPORT INFORMATION
  Report Type: 
  Country: None (occurrence: None)
  Receive Date: 20100816
  Receipt Date: 20100804
  Transmission Date: 20110219
  Serious: Yes (Other)
  Sender: FDA-Public Use
  Company Number: AECAN20100202

PATIENT
  Age: 68 Year
  Sex: Male
  Weight: 74.8435 kg

DRUGS (17)
  1. GAMUNEX [Suspect]
     Indication: MYASTHENIA GRAVIS
     Dosage: 175 GM; TOTAL; IV
     Route: 042
     Dates: start: 20100202, end: 20100208
  2. GAMUNEX [Suspect]
  3. GAMUNEX [Suspect]
  4. CORTICOSTEROIDS (CORTICOSTEROIDS) [Suspect]
     Indication: MYASTHENIA GRAVIS
     Dates: start: 20100101
  5. AZATHIOPRINE [Suspect]
     Indication: MYASTHENIA GRAVIS
     Dates: start: 20100101
  6. NAPROSYN [Concomitant]
  7. TYLENOL WITH CODEIN #3 [Concomitant]
  8. SPIRIVA [Concomitant]
  9. GLUCOPHAGE [Concomitant]
  10. ALTACE [Concomitant]
  11. HYDROTHIAZIDE [Concomitant]
  12. FOSAMAX [Concomitant]
  13. CALCIUM CARBONATE [Concomitant]
  14. VITAMIN D /00318501/ [Concomitant]
  15. ZANTAC [Concomitant]
  16. PREDNISONE [Concomitant]
  17. IMURAN [Concomitant]

REACTIONS (1)
  - HEPATITIS B [None]
